FAERS Safety Report 5161049-7 (Version None)
Quarter: 2006Q4

REPORT INFORMATION
  Report Type: 
  Country: None (occurrence: None)
  Receive Date: 20061121
  Receipt Date: 20061110
  Transmission Date: 20070319
  Serious: Yes (Other)
  Sender: FDA-Public Use
  Company Number: 2006140618

PATIENT
  Sex: Female

DRUGS (1)
  1. METHYLPREDNISOLONE ACETATE [Suspect]
     Dosage: 160 MG, INTRA-ARTERIAL
     Route: 013
     Dates: start: 20061109

REACTIONS (1)
  - BLOOD GLUCOSE INCREASED [None]
